FAERS Safety Report 7638363-6 (Version None)
Quarter: 2011Q3

REPORT INFORMATION
  Report Type: 
  Country: None (occurrence: None)
  Receive Date: 20110720
  Receipt Date: 20110711
  Transmission Date: 20111222
  Serious: Yes (Hospitalization)
  Sender: FDA-Public Use
  Company Number: 2011002245

PATIENT
  Age: 60 Year
  Sex: Male
  Weight: 90 kg

DRUGS (15)
  1. SLOW-K [Concomitant]
  2. ALLOPURINOL [Concomitant]
  3. CIPROFLOXACIN [Concomitant]
  4. BEPANTHENE (DEXPANTHENOL) [Concomitant]
  5. OXYCODONE HCL [Concomitant]
  6. PREDNISONE [Concomitant]
  7. ERLOTINIB HYDROCHLORIDE [Suspect]
     Indication: NON-SMALL CELL LUNG CANCER
     Dosage: 50 MG, ORAL
     Route: 048
     Dates: start: 20110121
  8. SPIRIVA [Concomitant]
  9. PANTOPRAZOL (PANTOPRAZOLE) [Concomitant]
  10. SERETIDE (SERETIDE) [Concomitant]
  11. CAPTOPRIL/HYDROCHLOROTHIAZIDE (CAPTOPRIL, HYDROCHLOROTHIAZIDE) [Concomitant]
  12. FUROSEMIDE [Concomitant]
  13. MIRTAZAPINE [Concomitant]
  14. CODEINE SULFATE [Concomitant]
  15. AUGMENTIN '125' [Concomitant]

REACTIONS (6)
  - OESOPHAGOBRONCHIAL FISTULA [None]
  - FISTULA [None]
  - DECREASED APPETITE [None]
  - OESOPHAGEAL FISTULA [None]
  - TACHYCARDIA [None]
  - PNEUMONIA [None]
